FAERS Safety Report 6183638-3 (Version None)
Quarter: 2009Q2

REPORT INFORMATION
  Report Type: 
  Country: None (occurrence: None)
  Receive Date: 20090508
  Receipt Date: 20090501
  Transmission Date: 20091009
  Serious: Yes (Other)
  Sender: FDA-Public Use
  Company Number: GB-JNJFOC-20090500954

PATIENT
  Age: 5 Year

DRUGS (6)
  1. ITRACONAZOLE [Suspect]
     Indication: ANTIFUNGAL PROPHYLAXIS
     Route: 065
  2. ALEMTUZUMAB [Suspect]
     Indication: STEM CELL TRANSPLANT
     Route: 065
  3. BUSULFAN [Suspect]
     Indication: STEM CELL TRANSPLANT
     Route: 065
  4. CYCLOSPORINE [Suspect]
     Indication: PROPHYLAXIS AGAINST GRAFT VERSUS HOST DISEASE
     Route: 065
  5. CYCLOPHOSPHAMIDE [Suspect]
     Indication: STEM CELL TRANSPLANT
     Route: 065
  6. CO-TRIMOXAZOLE [Concomitant]
     Indication: PROPHYLAXIS
     Route: 065

REACTIONS (4)
  - ACUTE GRAFT VERSUS HOST DISEASE IN SKIN [None]
  - CANDIDA PNEUMONIA [None]
  - DRUG INEFFECTIVE [None]
  - ENGRAFT FAILURE [None]
